FAERS Safety Report 7942509-X (Version None)
Quarter: 2011Q4

REPORT INFORMATION
  Report Type: 
  Country: None (occurrence: None)
  Receive Date: 20111128
  Receipt Date: 20111116
  Transmission Date: 20120403
  Serious: Yes (Death)
  Sender: FDA-Public Use
  Company Number: JP-GLAXOSMITHKLINE-B0758184A

PATIENT
  Sex: Female

DRUGS (2)
  1. HYCAMTIN [Suspect]
     Indication: OVARIAN CANCER RECURRENT
     Dosage: 2MG PER DAY
     Route: 042
     Dates: start: 20110516, end: 20110826
  2. DEXAMETHASONE SODIUM PHOSPHATE [Concomitant]

REACTIONS (8)
  - BLOOD CREATININE INCREASED [None]
  - BLOOD PRESSURE DECREASED [None]
  - HEPATIC ENZYME INCREASED [None]
  - NEUTROPENIA [None]
  - LOSS OF CONSCIOUSNESS [None]
  - HYPOPHAGIA [None]
  - VOMITING [None]
  - PANCYTOPENIA [None]
